FAERS Safety Report 14168085 (Version 2)
Quarter: 2017Q4

REPORT INFORMATION
  Report Type: Spontaneous
  Country: CN (occurrence: CN)
  Receive Date: 20171108
  Receipt Date: 20171206
  Transmission Date: 20180321
  Serious: Yes (Death, Other)
  Sender: FDA-Public Use
  Company Number: CN-CIPLA LTD.-2017CN19298

PATIENT

DRUGS (12)
  1. FACTOR XIII [Concomitant]
     Active Substance: FACTOR XIII CONCENTRATE (HUMAN)
     Dosage: UNK
     Route: 036
  2. FIBRINOGEN [Concomitant]
     Active Substance: FIBRINOGEN HUMAN
     Dosage: UNK
     Route: 036
  3. LIPIODOL [Concomitant]
     Active Substance: ETHIODIZED OIL
     Dosage: UNK
     Route: 065
  4. CISPLATIN. [Suspect]
     Active Substance: CISPLATIN
     Indication: PANCREATIC CARCINOMA
     Dosage: 30 MG, 2 CYCLES (PGPI)
     Route: 036
  5. GEMCITABINE [Suspect]
     Active Substance: GEMCITABINE\GEMCITABINE HYDROCHLORIDE
     Indication: METASTASES TO LIVER
     Dosage: 1000 MG/M2, 1 CYCLE (TACE)
     Route: 065
  6. CISPLATIN. [Suspect]
     Active Substance: CISPLATIN
     Indication: METASTASES TO LIVER
     Dosage: 100 MG/M2, 1 CYCLE (TACE)
     Route: 065
  7. CALCIUM CHLORIDE. [Concomitant]
     Active Substance: CALCIUM CHLORIDE
     Dosage: 1.5 ML, UNK
     Route: 036
  8. GEMCITABINE [Suspect]
     Active Substance: GEMCITABINE\GEMCITABINE HYDROCHLORIDE
     Indication: PANCREATIC CARCINOMA
     Dosage: 600 MG, 2 CYCLES (PGPI)
     Route: 036
  9. THROMBIN [Concomitant]
     Active Substance: THROMBIN
     Dosage: UNK
     Route: 036
  10. APROTININ [Concomitant]
     Active Substance: APROTININ
     Dosage: 1.5 ML, UNK
     Route: 036
  11. LIDOCAINE. [Concomitant]
     Active Substance: LIDOCAINE
     Dosage: 2 ML, UNK, 2% LIDOCAINE
     Route: 036
  12. OMNIPAQUE [Concomitant]
     Active Substance: IOHEXOL
     Dosage: 2 ML, UNK
     Route: 036

REACTIONS (3)
  - Vomiting [Recovered/Resolved]
  - Disease progression [Unknown]
  - Death [Fatal]
